FAERS Safety Report 8799953 (Version 1)
Quarter: 2012Q4

REPORT INFORMATION
  Report Type: Spontaneous
  Country: US (occurrence: None)
  Receive Date: 20120918
  Receipt Date: 20120918
  Transmission Date: 20130627
  Serious: Yes (Hospitalization)
  Sender: FDA-Public Use
  Company Number: None

PATIENT

DRUGS (1)
  1. LYRICA [Suspect]
     Indication: GENERAL BODY PAIN

REACTIONS (7)
  - Headache [None]
  - Dizziness [None]
  - Aggression [None]
  - Anger [None]
  - Suicidal ideation [None]
  - Decreased appetite [None]
  - Genital pain [None]
